FAERS Safety Report 11218401 (Version 1)
Quarter: 2015Q2

REPORT INFORMATION
  Report Type: Spontaneous
  Country: US (occurrence: None)
  Receive Date: 20150623
  Receipt Date: 20150623
  Transmission Date: 20150821
  Serious: Yes (Disabling)
  Sender: FDA-Public Use
  Company Number: None

PATIENT
  Age: 51 Year
  Sex: Female
  Weight: 73.48 kg

DRUGS (10)
  1. BUDESONIDE-FORMOTEROL [Concomitant]
     Active Substance: BUDESONIDE\FORMOTEROL
  2. ERGOCALCIFEROL. [Concomitant]
     Active Substance: ERGOCALCIFEROL
  3. FENOFIBRATE. [Concomitant]
     Active Substance: FENOFIBRATE
  4. GABAPENTIN 300MG CAPSULE- [Suspect]
     Active Substance: GABAPENTIN
     Indication: HYPERHIDROSIS
     Route: 048
     Dates: start: 20150127, end: 20150603
  5. CITALOPRAM [Concomitant]
     Active Substance: CITALOPRAM HYDROBROMIDE
  6. EPIPEN [Concomitant]
     Active Substance: EPINEPHRINE
  7. LEVOCETIRIZINE [Concomitant]
     Active Substance: LEVOCETIRIZINE
  8. METFORMIN [Concomitant]
     Active Substance: METFORMIN HYDROCHLORIDE
  9. ATORVASTATIN [Concomitant]
     Active Substance: ATORVASTATIN
  10. HYDROCHLOROTHIAZIDE. [Concomitant]
     Active Substance: HYDROCHLOROTHIAZIDE

REACTIONS (6)
  - Reading disorder [None]
  - Depression [None]
  - Dysgraphia [None]
  - Vision blurred [None]
  - Suicidal ideation [None]
  - Memory impairment [None]

NARRATIVE: CASE EVENT DATE: 20150127
